FAERS Safety Report 7842860-8 (Version None)
Quarter: 2011Q4

REPORT INFORMATION
  Report Type: 
  Country: None (occurrence: None)
  Receive Date: 20111025
  Receipt Date: 20111012
  Transmission Date: 20120403
  Serious: Yes (Hospitalization, Other)
  Sender: FDA-Public Use
  Company Number: US-BAYER-2011-006764

PATIENT
  Age: 41 Year
  Sex: Female

DRUGS (4)
  1. YASMIN [Suspect]
     Indication: PREMENSTRUAL SYNDROME
     Dosage: UNK
     Dates: start: 20030101, end: 20050101
  2. YASMIN [Suspect]
  3. CITALOPRAM [Concomitant]
     Indication: HYSTERECTOMY
  4. ESTRACE [Concomitant]
     Indication: HYSTERECTOMY

REACTIONS (9)
  - MENTAL DISORDER [None]
  - HYSTERECTOMY [None]
  - ABDOMINAL PAIN UPPER [None]
  - EMOTIONAL DISTRESS [None]
  - PAIN [None]
  - SEXUAL DYSFUNCTION [None]
  - ANXIETY [None]
  - CHOLECYSTECTOMY [None]
  - INJURY [None]
